FAERS Safety Report 8029088-6 (Version None)
Quarter: 2012Q1

REPORT INFORMATION
  Report Type: 
  Country: None (occurrence: None)
  Receive Date: 20120106
  Receipt Date: 20120102
  Transmission Date: 20120608
  Serious: Yes (Other)
  Sender: FDA-Public Use
  Company Number: CA-NAPPMUNDI-CAN-2012-0002488

PATIENT
  Age: 33 Year
  Sex: Female

DRUGS (2)
  1. OXYCONTIN [Suspect]
     Indication: PRODUCT USED FOR UNKNOWN INDICATION
  2. OXYCONTIN [Suspect]
     Indication: PAIN
     Dosage: UNK
     Route: 045

REACTIONS (13)
  - SELF ESTEEM DECREASED [None]
  - DEPRESSION [None]
  - VOMITING [None]
  - EUPHORIC MOOD [None]
  - DRUG ABUSE [None]
  - AFFECT LABILITY [None]
  - DIARRHOEA [None]
  - DRUG DEPENDENCE [None]
  - HYPERHIDROSIS [None]
  - INCORRECT ROUTE OF DRUG ADMINISTRATION [None]
  - SUICIDAL IDEATION [None]
  - TREMOR [None]
  - DRUG WITHDRAWAL SYNDROME [None]
